FAERS Safety Report 7425773-5 (Version None)
Quarter: 2011Q2

REPORT INFORMATION
  Report Type: 
  Country: None (occurrence: None)
  Receive Date: 20110418
  Receipt Date: 20110418
  Transmission Date: 20111010
  Serious: Yes (Hospitalization)
  Sender: FDA-Public Use
  Company Number: None

PATIENT
  Age: 79 Year
  Sex: Female

DRUGS (2)
  1. FENTANYL-50 [Suspect]
     Indication: PAIN
     Dosage: 1 PATCH Q3DAY TRANSDERMAL
     Route: 062
  2. PERCOCET-5 [Suspect]
     Indication: PAIN
     Dosage: 1 TAB Q4H PRN PO
     Route: 048

REACTIONS (2)
  - HYPOTENSION [None]
  - MENTAL STATUS CHANGES [None]
